FAERS Safety Report 4432375-1 (Version None)
Quarter: 2004Q3

REPORT INFORMATION
  Report Type: 
  Country: None (occurrence: None)
  Receive Date: 20040820
  Receipt Date: 20040802
  Transmission Date: 20050211
  Serious: Yes (Other)
  Sender: FDA-Public Use
  Company Number: JP_040703706

PATIENT
  Age: 59 Year
  Sex: Male

DRUGS (5)
  1. ONCOVIN [Suspect]
     Indication: LYMPHOMA
     Dosage: 1 MG/M2 DAY
  2. CYCLOPHOSPHAMIDE [Concomitant]
  3. MERCAPTOPURINE [Concomitant]
  4. PREDNISOLONE [Concomitant]
  5. RITUXAN [Concomitant]

REACTIONS (1)
  - OPTIC ATROPHY [None]
